FAERS Safety Report 8464258-4 (Version None)
Quarter: 2012Q2

REPORT INFORMATION
  Report Type: 
  Country: None (occurrence: None)
  Receive Date: 20120625
  Receipt Date: 20120618
  Transmission Date: 20120825
  Serious: Yes (Other)
  Sender: FDA-Public Use
  Company Number: BR-PFIZER INC-2012147198

PATIENT
  Age: 67 Year
  Sex: Female
  Weight: 60 kg

DRUGS (6)
  1. PLAVIX [Concomitant]
     Indication: BLOOD PRESSURE INCREASED
     Dosage: UNK
     Dates: start: 20020101
  2. ATORVASTATIN CALCIUM [Concomitant]
     Dosage: UNK
     Dates: start: 20020101
  3. XALATAN [Suspect]
     Dosage: 3 UG (ONE DROP IN EACH EYE), 3X/DAY
     Route: 047
  4. COSOPT [Concomitant]
     Dosage: UNK
     Dates: start: 20020101
  5. GABAPENTIN [Concomitant]
     Indication: RELAXATION THERAPY
     Dosage: UNK
     Dates: start: 20090101
  6. ALPHAGAN [Concomitant]
     Dosage: UNK
     Dates: start: 20100101

REACTIONS (1)
  - CEREBROVASCULAR ACCIDENT [None]
